FAERS Safety Report 8624535-0 (Version None)
Quarter: 2012Q3

REPORT INFORMATION
  Report Type: 
  Country: None (occurrence: None)
  Receive Date: 20120827
  Receipt Date: 20120827
  Transmission Date: 20120928
  Serious: Yes (Hospitalization, Other)
  Sender: FDA-Public Use
  Company Number: US-PFIZER INC-2012164968

PATIENT
  Age: 59 Year
  Sex: Male
  Weight: 76.19 kg

DRUGS (5)
  1. PROTONIX [Suspect]
     Indication: DYSPEPSIA
  2. PROTONIX [Suspect]
     Indication: PROPHYLAXIS
  3. HUMALOG [Concomitant]
     Indication: DIABETES MELLITUS
     Dosage: 10 MG, DAILY
  4. PROTONIX [Suspect]
     Indication: HYPERCHLORHYDRIA
     Dosage: 40 MG, DAILY
     Route: 048
     Dates: start: 20100101
  5. LASIX [Concomitant]
     Indication: DIABETES MELLITUS
     Dosage: 20 MG, DAILY

REACTIONS (5)
  - PRURITUS [None]
  - NAUSEA [None]
  - PANCREATIC OPERATION [None]
  - MALAISE [None]
  - BILIOPANCREATIC BYPASS [None]
